FAERS Safety Report 22173643 (Version 1)
Quarter: 2023Q2

REPORT INFORMATION
  Report Type: Spontaneous
  Country: CA (occurrence: CA)
  Receive Date: 20230404
  Receipt Date: 20230404
  Transmission Date: 20230721
  Serious: Yes (Other)
  Sender: FDA-Public Use
  Company Number: CA-APIL-2310075US

PATIENT
  Sex: Female

DRUGS (1)
  1. GLYCERIN\POLYSORBATE 80 [Suspect]
     Active Substance: GLYCERIN\POLYSORBATE 80
     Indication: Dry eye

REACTIONS (3)
  - Cataract [Unknown]
  - Accommodation disorder [Not Recovered/Not Resolved]
  - Foreign body sensation in eyes [Not Recovered/Not Resolved]

NARRATIVE: CASE EVENT DATE: 20220901
